FAERS Safety Report 6054652-3 (Version None)
Quarter: 2009Q1

REPORT INFORMATION
  Report Type: 
  Country: None (occurrence: None)
  Receive Date: 20090128
  Receipt Date: 20090116
  Transmission Date: 20090719
  Serious: Yes (Death)
  Sender: FDA-Public Use
  Company Number: US-RANBAXY-2009RR-21048

PATIENT
  Age: 43 Year
  Sex: Male

DRUGS (8)
  1. AMITRIPTYLINE HCL [Suspect]
     Indication: COMPLETED SUICIDE
     Route: 048
  2. MORPHINE SULFATE [Suspect]
     Indication: COMPLETED SUICIDE
     Route: 048
  3. LISINOPRIL [Suspect]
     Indication: COMPLETED SUICIDE
     Route: 048
  4. NAPROXEN [Suspect]
     Indication: COMPLETED SUICIDE
     Route: 048
  5. BACLOFEN [Suspect]
     Indication: COMPLETED SUICIDE
     Route: 048
  6. GABAPENTIN [Suspect]
     Indication: COMPLETED SUICIDE
     Route: 048
  7. VENLAFAXINE HCL [Suspect]
     Indication: COMPLETED SUICIDE
     Route: 048
  8. ETHANOL [Suspect]
     Indication: COMPLETED SUICIDE
     Route: 048

REACTIONS (1)
  - COMPLETED SUICIDE [None]
